FAERS Safety Report 10997301 (Version 1)
Quarter: 2015Q2

REPORT INFORMATION
  Report Type: Spontaneous
  Country: US (occurrence: US)
  Receive Date: 20150408
  Receipt Date: 20150408
  Transmission Date: 20150821
  Serious: No
  Sender: FDA-Public Use
  Company Number: US-BANPHARM-20142527

PATIENT
  Age: 56 Year
  Sex: Male
  Weight: 95.25 kg

DRUGS (7)
  1. LORATADINE. [Concomitant]
     Active Substance: LORATADINE
  2. SIMVASTATIN. [Concomitant]
     Active Substance: SIMVASTATIN
  3. BAYER ASPIRIN [Suspect]
     Active Substance: ASPIRIN
  4. METFORMIN [Concomitant]
     Active Substance: METFORMIN HYDROCHLORIDE
  5. ALEVE [Suspect]
     Active Substance: NAPROXEN SODIUM
     Dosage: 6 DF,
     Route: 048
  6. LOSARTAN [Concomitant]
     Active Substance: LOSARTAN
  7. METROPOLOL [Concomitant]
     Active Substance: METOPROLOL

REACTIONS (2)
  - Haemoptysis [Unknown]
  - Accidental overdose [Unknown]
